FAERS Safety Report 7113800-4 (Version None)
Quarter: 2010Q4

REPORT INFORMATION
  Report Type: 
  Country: None (occurrence: None)
  Receive Date: 20101119
  Receipt Date: 20101112
  Transmission Date: 20110411
  Serious: Yes (Death, Hospitalization)
  Sender: FDA-Public Use
  Company Number: BR-ACTELION-A-CH2010-41770

PATIENT
  Sex: Female

DRUGS (1)
  1. BOSENTAN TABLET 62.5 MG ROW [Suspect]
     Indication: PRODUCT USED FOR UNKNOWN INDICATION
     Dosage: 62.5 MG, BID
     Route: 048
     Dates: end: 20101103

REACTIONS (6)
  - CHOLELITHIASIS [None]
  - CONVULSION [None]
  - CYANOSIS [None]
  - DEATH [None]
  - DYSPNOEA [None]
  - SWELLING [None]
